FAERS Safety Report 4553750-0 (Version None)
Quarter: 2005Q1

REPORT INFORMATION
  Report Type: 
  Country: None (occurrence: None)
  Receive Date: 20050114
  Receipt Date: 20050114
  Transmission Date: 20050727
  Serious: Yes (Death)
  Sender: FDA-Public Use
  Company Number: None

PATIENT
  Sex: Female
  Weight: 80.2867 kg

DRUGS (4)
  1. GEMCITABINE [Suspect]
     Indication: PANCREATIC CARCINOMA
     Dosage: 1000MG.M2  WEEKLY X 6 INTRAVENOUS  ; 1000MGM2 Q WKS3,TWK INTRAVENOUS
     Route: 042
     Dates: start: 20040805, end: 20040909
  2. GEMCITABINE [Suspect]
     Indication: PANCREATIC CARCINOMA
     Dosage: 1000MG.M2  WEEKLY X 6 INTRAVENOUS  ; 1000MGM2 Q WKS3,TWK INTRAVENOUS
     Route: 042
     Dates: start: 20040930, end: 20041115
  3. ANZEMET [Concomitant]
  4. ARANESP [Concomitant]

REACTIONS (1)
  - DISEASE PROGRESSION [None]
